FAERS Safety Report 17841128 (Version 2)
Quarter: 2020Q2

REPORT INFORMATION
  Report Type: Spontaneous
  Country: US (occurrence: US)
  Receive Date: 20200529
  Receipt Date: 20200610
  Transmission Date: 20200714
  Serious: Yes (Hospitalization)
  Sender: FDA-Public Use
  Company Number: US-PFIZER INC-2020142176

PATIENT
  Age: 57 Year
  Sex: Female
  Weight: 74.83 kg

DRUGS (2)
  1. RELPAX [Suspect]
     Active Substance: ELETRIPTAN HYDROBROMIDE
     Indication: MIGRAINE
     Dosage: 40 MG, 1X/DAY
  2. RELPAX [Suspect]
     Active Substance: ELETRIPTAN HYDROBROMIDE
     Indication: HEADACHE
     Dosage: 40 MG, AS NEEDED
     Dates: end: 2018

REACTIONS (3)
  - Aortic rupture [Unknown]
  - Back injury [Unknown]
  - Neck injury [Unknown]

NARRATIVE: CASE EVENT DATE: 20181018
